FAERS Safety Report 6094002-X (Version None)
Quarter: 2009Q1

REPORT INFORMATION
  Report Type: 
  Country: None (occurrence: None)
  Receive Date: 20090226
  Receipt Date: 20090219
  Transmission Date: 20090719
  Serious: Yes (Other)
  Sender: FDA-Public Use
  Company Number: B0561117A

PATIENT
  Age: 22 Year
  Sex: Female

DRUGS (2)
  1. ZELITREX [Suspect]
     Indication: HERPES VIRUS INFECTION
     Dosage: 500MG TWICE PER DAY
     Route: 048
     Dates: start: 20090201
  2. LEVONORGESTREL AND ETHINYL ESTRADIOL [Concomitant]
     Indication: CONTRACEPTION
     Route: 048

REACTIONS (2)
  - MENSTRUAL DISORDER [None]
  - SYNCOPE [None]
